FAERS Safety Report 7381478-0 (Version None)
Quarter: 2011Q1

REPORT INFORMATION
  Report Type: 
  Country: None (occurrence: None)
  Receive Date: 20110329
  Receipt Date: 20110314
  Transmission Date: 20110831
  Serious: Yes (Hospitalization, Other)
  Sender: FDA-Public Use
  Company Number: PHHY2009JP12348

PATIENT
  Sex: Male
  Weight: 56 kg

DRUGS (48)
  1. CERTICAN [Suspect]
     Dosage: 3.25 MG, UNK
     Route: 048
     Dates: start: 20090109, end: 20090730
  2. CERTICAN [Suspect]
     Dosage: 3.75 MG, UNK
     Route: 048
     Dates: start: 20090806, end: 20091218
  3. NEORAL [Suspect]
     Dosage: 140 MG/DAY
     Route: 048
     Dates: start: 20080729, end: 20080808
  4. NEORAL [Suspect]
     Dosage: 160 MG, UNK
     Route: 048
     Dates: start: 20080823, end: 20080902
  5. PREDONINE [Suspect]
     Indication: HEART TRANSPLANT
     Dosage: UNK
     Route: 048
     Dates: start: 20040201
  6. CARBAMAZEPINE [Concomitant]
  7. NORVASC [Concomitant]
     Indication: HYPERTENSION
     Dosage: 7.5 MG, UNK
     Route: 048
  8. NORVASC [Concomitant]
     Dosage: 5 MG, UNK
     Route: 048
  9. CERTICAN [Suspect]
     Dosage: 1.5 MG, UNK
     Route: 048
     Dates: start: 20080724, end: 20080807
  10. CERTICAN [Suspect]
     Dosage: 1.75 MG, UNK
     Route: 048
     Dates: start: 20080808, end: 20080829
  11. CERTICAN [Suspect]
     Dosage: 2.5 MG, UNK
     Route: 048
     Dates: start: 20081225, end: 20081225
  12. CERTICAN [Suspect]
     Dosage: 2 MG, UNK
     Route: 048
     Dates: start: 20081218, end: 20081224
  13. CERTICAN [Suspect]
     Dosage: 3 MG, UNK
     Route: 048
     Dates: start: 20081226, end: 20090108
  14. PREDONINE [Suspect]
     Dosage: 110 MG, UNK
     Dates: start: 20081028, end: 20081030
  15. VALGANCICLOVIR [Concomitant]
     Indication: INFECTION PROPHYLAXIS
     Dosage: 900 MG, UNK
     Route: 048
     Dates: start: 20080530, end: 20080901
  16. CERTICAN [Suspect]
     Dosage: 3.5 MG, UNK
     Route: 048
     Dates: start: 20090731, end: 20090805
  17. CERTICAN [Suspect]
     Dosage: 3.5 MG, UNK
     Route: 048
     Dates: start: 20091219, end: 20100210
  18. CERTICAN [Suspect]
     Dosage: 3.75 MG, UNK
     Route: 048
     Dates: start: 20100211, end: 20100415
  19. CERTICAN [Suspect]
     Dosage: 4 MG, UNK
     Route: 048
     Dates: start: 20100416, end: 20100610
  20. CERTICAN [Suspect]
     Dosage: 4.5 MG, UNK
     Route: 048
     Dates: start: 20100611, end: 20100712
  21. NEORAL [Suspect]
     Dosage: 150 MG, UNK
     Route: 048
     Dates: start: 20080809, end: 20080822
  22. NEORAL [Suspect]
     Dosage: 170 MG, UNK
     Route: 048
     Dates: start: 20080903, end: 20080911
  23. NEORAL [Suspect]
     Dosage: 160 MG, UNK
     Route: 048
     Dates: start: 20080912, end: 20081207
  24. PREDONINE [Suspect]
     Dosage: 7.5 MG, UNK
     Dates: start: 20081031, end: 20081207
  25. NORVASC [Concomitant]
     Dosage: 2.5 MG, UNK
     Route: 048
     Dates: start: 20040227
  26. VALGANCICLOVIR [Concomitant]
     Dosage: 900 MG, UNK
     Route: 048
     Dates: end: 20081222
  27. ZETIA [Concomitant]
     Dosage: 10 MG, UNK
     Route: 048
  28. TAMIFLU [Concomitant]
     Dosage: 150 MG, UNK
     Route: 048
     Dates: start: 20091016, end: 20091020
  29. CERTICAN [Suspect]
     Dosage: 1.25 MG, UNK
     Route: 048
     Dates: start: 20080926, end: 20081207
  30. CERTICAN [Suspect]
     Dosage: 1.5 MG, UNK
     Route: 048
     Dates: start: 20081208, end: 20081217
  31. CERTICAN [Suspect]
     Dosage: 4.5 MG, UNK
     Route: 048
     Dates: start: 20100828, end: 20101104
  32. CELLCEPT [Suspect]
     Dosage: 1.25 G, UNK
     Dates: end: 20080723
  33. CRESTOR [Concomitant]
     Dosage: 2.5 MG, UNK
     Route: 048
     Dates: start: 20101125, end: 20101221
  34. CERTICAN [Suspect]
     Dosage: 0.5 MG, UNK
     Route: 048
     Dates: start: 20080903, end: 20080925
  35. CERTICAN [Suspect]
     Dosage: 4.75 MG, UNK
     Route: 048
     Dates: start: 20101105
  36. NEORAL [Suspect]
     Dosage: 160 MG/DAY
     Route: 048
     Dates: start: 20080728, end: 20080728
  37. CELLCEPT [Suspect]
     Indication: HEART TRANSPLANT
     Dosage: 1.25 G, UNK
     Route: 048
     Dates: start: 20040209
  38. PREDONINE [Suspect]
     Dosage: 30 DF
     Dates: start: 20080826
  39. CEFAZOLIN [Concomitant]
  40. SALINE [Concomitant]
  41. NEORAL [Suspect]
     Indication: HEART TRANSPLANT
     Dosage: 180 MG/DAY
     Route: 048
     Dates: start: 20040207, end: 20080727
  42. PREDONINE [Suspect]
     Dosage: UNK
     Route: 048
     Dates: end: 20070101
  43. PREDONINE [Suspect]
     Dosage: 7.5 MG, UNK
     Dates: start: 20100526
  44. BAKTAR [Concomitant]
     Indication: ANTIFUNGAL PROPHYLAXIS
     Dosage: 1 DF
     Route: 048
  45. ZETIA [Concomitant]
     Dosage: 10 MG, UNK
     Route: 048
     Dates: start: 20090123
  46. LIVALO [Concomitant]
     Dosage: 1 MG, UNK
     Route: 048
     Dates: start: 20090806, end: 20100609
  47. CERTICAN [Suspect]
     Dosage: 4.25 MG, UNK
     Route: 048
     Dates: start: 20100713, end: 20100827
  48. PREDONINE [Suspect]
     Dosage: 10 MG, UNK
     Dates: start: 20081208, end: 20100525

REACTIONS (18)
  - LEUKOPENIA [None]
  - SNAKE BITE [None]
  - HEART TRANSPLANT REJECTION [None]
  - INTERLEUKIN-2 RECEPTOR INCREASED [None]
  - PAIN IN EXTREMITY [None]
  - EPSTEIN-BARR VIRUS INFECTION [None]
  - EXCESSIVE GRANULATION TISSUE [None]
  - LYMPHOMA [None]
  - OEDEMA PERIPHERAL [None]
  - CORONARY ARTERY DISEASE [None]
  - ECHOCARDIOGRAM ABNORMAL [None]
  - ERYTHEMA [None]
  - MALAISE [None]
  - CYTOMEGALOVIRUS INFECTION [None]
  - ANAPHYLACTIC SHOCK [None]
  - FEELING HOT [None]
  - DYSPNOEA [None]
  - IMMUNOSUPPRESSANT DRUG LEVEL DECREASED [None]
